FAERS Safety Report 16169984 (Version 6)
Quarter: 2020Q1

REPORT INFORMATION
  Report Type: Report from Study
  Country: IE (occurrence: IE)
  Receive Date: 20190408
  Receipt Date: 20200114
  Transmission Date: 20200409
  Serious: Yes (Hospitalization)
  Sender: FDA-Public Use
  Company Number: IE-VERTEX PHARMACEUTICALS-2019-002969

PATIENT
  Age: 4 Year
  Sex: Female

DRUGS (2)
  1. ORKAMBI [Suspect]
     Active Substance: IVACAFTOR\LUMACAFTOR
     Dosage: 150/188 MG GRANULES, FREQUENCY UNKNOWN
     Route: 048
     Dates: start: 2019
  2. ORKAMBI [Suspect]
     Active Substance: IVACAFTOR\LUMACAFTOR
     Indication: CYSTIC FIBROSIS
     Dosage: 150/188 MG GRANULES, FREQUENCY UNKNOWN
     Route: 048
     Dates: start: 20190329, end: 201904

REACTIONS (7)
  - Pyrexia [Recovered/Resolved]
  - Somnolence [Recovered/Resolved]
  - Heart rate increased [Recovered/Resolved]
  - Cough [Recovering/Resolving]
  - Abnormal faeces [Recovered/Resolved]
  - Hiccups [Unknown]
  - Disorientation [Recovered/Resolved]

NARRATIVE: CASE EVENT DATE: 2019
